FAERS Safety Report 8574273 (Version 5)
Quarter: 2012Q4

REPORT INFORMATION
  Report Type: 
  Country: US (occurrence: US)
  Receive Date: 20120522
  Receipt Date: 20121214
  Transmission Date: 20130627
  Serious: Yes (Hospitalization)
  Sender: FDA-Public Use
  Company Number: US-ALEXION PHARMACEUTICALS INC.-A201200942

PATIENT
  Age: 57 None
  Sex: Female
  Weight: 89 kg

DRUGS (46)
  1. SOLIRIS 300MG [Suspect]
     Indication: PAROXYSMAL NOCTURNAL HAEMOGLOBINURIA
     Dosage: 600 mg, qw x 4 weeks
     Route: 042
     Dates: start: 20070821
  2. SOLIRIS 300MG [Suspect]
     Dosage: 900 mg, q2w
     Route: 042
     Dates: start: 20070918
  3. CLARITIN [Concomitant]
     Dosage: 10 mg, prn
     Route: 048
  4. CORTEF [Concomitant]
     Dosage: 10 mg, qd in the morning
  5. CORTEF [Concomitant]
     Dosage: 5 mg, qd at night
  6. FOLVITE [Concomitant]
     Dosage: 2 mg, qd
     Route: 048
  7. LOVAZA [Concomitant]
     Dosage: 4 g, qd
     Route: 048
  8. RELAFEN [Concomitant]
     Dosage: 250 mg, qd
     Route: 048
  9. SENNA PLUS [Concomitant]
     Indication: CONSTIPATION
     Dosage: 1-2 8.6/50 mg tablets daily as needed
     Route: 048
  10. COLACE [Concomitant]
     Dosage: 100 mg, qd
     Route: 048
  11. TYLENOL ARTHRITIS PAIN [Concomitant]
     Dosage: 1300 mg, bid
     Route: 048
  12. BUSPAR [Concomitant]
     Dosage: 10-20 mg bid
     Route: 048
  13. ACIDOPHILUS [Concomitant]
     Dosage: 1 capsule qd
     Route: 048
  14. BENEFIBER [Concomitant]
     Dosage: 17 g, qd
     Route: 048
  15. MACROBID [Concomitant]
     Indication: STRESS URINARY INCONTINENCE
     Dosage: 100 mg, qd
     Route: 048
  16. ASPIRIN [Concomitant]
     Dosage: 81 mg, qod
     Route: 048
  17. VESICARE [Concomitant]
     Indication: STRESS URINARY INCONTINENCE
     Dosage: 5 mg, qd
     Route: 048
  18. VESICARE [Concomitant]
     Indication: URINARY TRACT INFECTION
  19. JANTOVEN [Concomitant]
     Dosage: 5 mg, qd
     Route: 048
  20. JANTOVEN [Concomitant]
     Dosage: 7.5 mg, on Tuesday
     Route: 048
  21. NEURONTIN [Concomitant]
     Dosage: 600 mg, bid
     Route: 048
  22. SM COMPLETE ADVANCED FORMULA [Concomitant]
     Dosage: 1 tablet daily
     Route: 048
  23. ASCORBIC ACID [Concomitant]
  24. LIDODERM [Concomitant]
     Dosage: 2 patches for 12 hours every 24 hours
     Route: 061
  25. PROAIR [Concomitant]
     Dosage: 2 puffs every 4 hours as needed
  26. PREMARIN [Concomitant]
     Dosage: 3 times per week
     Route: 067
  27. MICONAZOLE [Concomitant]
     Dosage: 1 applicator 2 times daily as needed
  28. CALCIUM CITRATE W/VITAMIN D NOS [Concomitant]
     Dosage: 650/400 mg, bid
     Route: 048
  29. ELAVIL [Concomitant]
     Dosage: 10 mg, qd
     Route: 048
  30. PRILOSEC [Concomitant]
     Indication: OESOPHAGEAL DISORDER
     Dosage: 20 mg, qd
     Route: 048
  31. PRILOSEC [Concomitant]
     Indication: VOMITING
  32. KENALOG [Concomitant]
     Dosage: Apply 2 times daily
     Route: 061
  33. UROCIT-K [Concomitant]
     Dosage: 20 mEq, bid
     Route: 048
  34. LIDOCAINE HCL [Concomitant]
     Dosage: 1 cm as needed
     Route: 061
  35. VITAMIN B6 [Concomitant]
     Dosage: 50 mg, qd
     Route: 048
  36. OXY.IR [Concomitant]
     Dosage: 5-10 mg every 6 hours as needed
     Route: 048
  37. COZAAR [Concomitant]
     Dosage: 25 mg, qd
     Route: 048
  38. ATARAX [Concomitant]
     Indication: PRURITUS
     Dosage: 25 mg, every 8 hours prn
     Route: 048
  39. AMBIEN [Concomitant]
     Indication: INSOMNIA
     Dosage: 10 mg, prn
     Route: 048
  40. CYMBALTA [Concomitant]
     Dosage: 90 mg, qd
     Route: 048
  41. PILOCARPINE HCL [Concomitant]
     Dosage: 2 tablets daily
  42. FLONASE [Concomitant]
     Dosage: 200 mg, qd
     Route: 045
  43. SALINE [Concomitant]
     Dosage: 1-2 sprays as needed
     Route: 045
  44. VITAMIN B12 [Concomitant]
     Dosage: 1 tablet daily
  45. LASIX [Concomitant]
     Indication: ESSENTIAL HYPERTENSION
     Dosage: UNK
  46. ATENOLOL [Concomitant]
     Indication: ESSENTIAL HYPERTENSION
     Dosage: UNK

REACTIONS (2)
  - Abscess [Recovered/Resolved]
  - C-reactive protein increased [Recovering/Resolving]
